FAERS Safety Report 6290401-1 (Version None)
Quarter: 2009Q3

REPORT INFORMATION
  Report Type: 
  Country: None (occurrence: None)
  Receive Date: 20090730
  Receipt Date: 20090330
  Transmission Date: 20100115
  Serious: No
  Sender: FDA-Public Use
  Company Number: US-BRISTOL-MYERS SQUIBB COMPANY-14566681

PATIENT
  Age: 80 Year
  Sex: Male
  Weight: 85 kg

DRUGS (5)
  1. COUMADIN [Suspect]
     Indication: HEART VALVE REPLACEMENT
     Dosage: INNCREASED TO 2.5-3.5MG;THEN 3.75MG/DAY FOR 5DAYS AND2.5MGFOR 2DAYS;3.75MG FOR 6DAND 2.5MG FOR 1DAY
     Dates: start: 20081230
  2. COUMADIN [Suspect]
     Indication: TRANSIENT ISCHAEMIC ATTACK
     Dosage: INNCREASED TO 2.5-3.5MG;THEN 3.75MG/DAY FOR 5DAYS AND2.5MGFOR 2DAYS;3.75MG FOR 6DAND 2.5MG FOR 1DAY
     Dates: start: 20081230
  3. ATENOLOL [Concomitant]
  4. AMLODIPINE [Concomitant]
  5. ASPIRIN [Concomitant]

REACTIONS (2)
  - DRUG INEFFECTIVE [None]
  - INTERNATIONAL NORMALISED RATIO DECREASED [None]
